FAERS Safety Report 6480163-7 (Version None)
Quarter: 2009Q4

REPORT INFORMATION
  Report Type: 
  Country: None (occurrence: None)
  Receive Date: 20091208
  Receipt Date: 20091127
  Transmission Date: 20100525
  Serious: Yes (Death, Life-Threatening)
  Sender: FDA-Public Use
  Company Number: FR-NOVOPROD-288922

PATIENT

DRUGS (11)
  1. NOVOSEVEN [Suspect]
     Indication: POST PROCEDURAL HAEMORRHAGE
     Dosage: 2.4 MG, QD
     Route: 042
     Dates: start: 20090507, end: 20090507
  2. NOVOSEVEN [Suspect]
     Dosage: 4.8 MG, QD
     Route: 042
     Dates: start: 20090507, end: 20090507
  3. CLOTTAGEN [Suspect]
     Indication: DRUG USE FOR UNKNOWN INDICATION
  4. COVERSYL                           /00790701/ [Concomitant]
     Dosage: 4 MG, UNK
  5. INEXIUM                            /01479302/ [Concomitant]
     Dosage: 40 MG, UNK
  6. TAHOR [Concomitant]
     Dosage: 40 MG, UNK
  7. TENORMIN [Concomitant]
     Dosage: 50 MG, UNK
  8. AMLOR [Concomitant]
     Dosage: 5 MG, UNK
  9. PLAVIX [Concomitant]
     Dosage: 75 MG, UNK
  10. TARDYFERON                         /00023503/ [Concomitant]
     Dosage: 2 TAB, UNK
  11. KARDEGIC                           /00002703/ [Concomitant]
     Dosage: 75 MG, UNK

REACTIONS (2)
  - MULTI-ORGAN FAILURE [None]
  - MYOCARDIAL INFARCTION [None]
